FAERS Safety Report 5316953-3 (Version None)
Quarter: 2007Q2

REPORT INFORMATION
  Report Type: 
  Country: None (occurrence: None)
  Receive Date: 20070504
  Receipt Date: 20070426
  Transmission Date: 20071010
  Serious: Yes (Death, Other)
  Sender: FDA-Public Use
  Company Number: CA-PFIZER INC-2007033999

PATIENT

DRUGS (2)
  1. CELECOXIB [Suspect]
     Indication: RENAL CELL CARCINOMA STAGE UNSPECIFIED
     Route: 048
  2. CYCLOPHOSPHAMIDE [Suspect]
     Indication: RENAL CELL CARCINOMA STAGE UNSPECIFIED
     Route: 048

REACTIONS (6)
  - ANAEMIA [None]
  - DISSEMINATED INTRAVASCULAR COAGULATION [None]
  - DUODENAL ULCER HAEMORRHAGE [None]
  - GASTROENTERITIS [None]
  - MELAENA [None]
  - SEPSIS [None]
